FAERS Safety Report 9178320 (Version 2)
Quarter: 2013Q4

REPORT INFORMATION
  Report Type: Other
  Country: JP (occurrence: JP)
  Receive Date: 20121029
  Receipt Date: 20131122
  Transmission Date: 20140711
  Serious: Yes (Other)
  Sender: FDA-Public Use
  Company Number: JP-ACTELION-A-CH2012-73332

PATIENT
  Age: 66 Year
  Sex: Female

DRUGS (1)
  1. TRACLEER [Suspect]
     Indication: PULMONARY ARTERIAL HYPERTENSION
     Dosage: 125 MG, UNK
     Route: 048

REACTIONS (5)
  - Pneumonia cryptococcal [Unknown]
  - Pulmonary granuloma [Unknown]
  - Lung lobectomy [Unknown]
  - X-ray abnormal [Unknown]
  - Pulmonary mass [Unknown]
